FAERS Safety Report 5473211-4 (Version None)
Quarter: 2007Q4

REPORT INFORMATION
  Report Type: 
  Country: None (occurrence: None)
  Receive Date: 20071001
  Receipt Date: 20070919
  Transmission Date: 20080405
  Serious: Yes (Hospitalization)
  Sender: FDA-Public Use
  Company Number: BR-ROCHE-514649

PATIENT
  Age: 42 Year
  Sex: Male
  Weight: 70 kg

DRUGS (12)
  1. FUZEON [Suspect]
     Route: 058
     Dates: start: 20070813, end: 20070815
  2. TENOFOVIR DISOPROXIL FUMARATE [Suspect]
     Route: 048
     Dates: start: 20070813, end: 20070815
  3. TENOFOVIR DISOPROXIL FUMARATE [Suspect]
     Route: 048
     Dates: start: 20070905
  4. DARUNAVIR [Suspect]
     Route: 048
     Dates: start: 20070813, end: 20070815
  5. DARUNAVIR [Suspect]
     Route: 048
     Dates: start: 20070905
  6. ABACAVIR [Suspect]
     Route: 048
     Dates: start: 20070813, end: 20070815
  7. ABACAVIR [Suspect]
     Route: 048
     Dates: start: 20070905
  8. LAMIVUDINE [Suspect]
     Route: 048
     Dates: start: 20070813, end: 20070815
  9. PSYCHOTROPIC DRUG NOS [Concomitant]
     Dosage: DRUG NAME REPORTED AS UNSPECIFIED PSYCHOTROPIC DRUG.
  10. BACTRIM [Concomitant]
     Indication: OPPORTUNISTIC INFECTION PROPHYLAXIS
     Dosage: DOSAGE: 800+400MG/DAY.
     Dates: start: 19970101
  11. FLUCONAZOLE [Concomitant]
     Indication: OPPORTUNISTIC INFECTION PROPHYLAXIS
  12. AZITHROMYCIN [Concomitant]
     Indication: OPPORTUNISTIC INFECTION PROPHYLAXIS
     Dosage: DRUG NAME REPORTED AS AZYTHROMICIN.

REACTIONS (3)
  - CARDIAC OUTPUT DECREASED [None]
  - CONFUSIONAL STATE [None]
  - MYOCARDITIS [None]
